FAERS Safety Report 25372203 (Version 1)
Quarter: 2025Q2

REPORT INFORMATION
  Report Type: Spontaneous
  Country: US (occurrence: US)
  Receive Date: 20250529
  Receipt Date: 20250529
  Transmission Date: 20250717
  Serious: Yes (Other)
  Sender: NOVO NORDISK
  Company Number: US-NOVOPROD-1438277

PATIENT
  Age: 68 Year
  Sex: Male

DRUGS (1)
  1. RYBELSUS [Suspect]
     Active Substance: SEMAGLUTIDE
     Indication: Diabetes mellitus
     Dates: start: 202408, end: 202504

REACTIONS (2)
  - Fall [Unknown]
  - Rib fracture [Recovered/Resolved with Sequelae]

NARRATIVE: CASE EVENT DATE: 20250101
